FAERS Safety Report 7213722-4 (Version None)
Quarter: 2011Q1

REPORT INFORMATION
  Report Type: 
  Country: None (occurrence: None)
  Receive Date: 20110106
  Receipt Date: 20101227
  Transmission Date: 20110831
  Serious: Yes (Other)
  Sender: FDA-Public Use
  Company Number: JP-BAYER-2010-007821

PATIENT
  Age: 65 Year
  Sex: Male

DRUGS (1)
  1. CIPROFLOXACIN HCL [Suspect]
     Dosage: DAILY DOSE 200 MG
     Route: 048
     Dates: start: 20070601

REACTIONS (1)
  - RHABDOMYOLYSIS [None]
